FAERS Safety Report 7370085-1 (Version None)
Quarter: 2011Q1

REPORT INFORMATION
  Report Type: 
  Country: None (occurrence: None)
  Receive Date: 20110323
  Receipt Date: 20110310
  Transmission Date: 20110831
  Serious: Yes (Other)
  Sender: FDA-Public Use
  Company Number: PHHY2011CA19990

PATIENT
  Sex: Female

DRUGS (4)
  1. ACLASTA [Suspect]
     Dosage: 5 MG/100 ML/ONCE A YEAR
     Dates: start: 20110223
  2. ACETAMINOPHEN [Concomitant]
     Dosage: EVERY 4 HOURS
  3. TAMIFLU [Concomitant]
  4. ANTIBIOTICS [Concomitant]

REACTIONS (7)
  - NAUSEA [None]
  - PYREXIA [None]
  - HEADACHE [None]
  - BONE PAIN [None]
  - PAIN IN EXTREMITY [None]
  - BACK PAIN [None]
  - VIRAL INFECTION [None]
